FAERS Safety Report 13000824 (Version 1)
Quarter: 2016Q4

REPORT INFORMATION
  Report Type: Spontaneous
  Country: US (occurrence: US)
  Receive Date: 20161206
  Receipt Date: 20161206
  Transmission Date: 20170207
  Serious: Yes (Death, Hospitalization, Other)
  Sender: FDA-Public Use
  Company Number: US-DRREDDYS-USA/USA/16/0085193

PATIENT
  Age: 55 Year
  Sex: Male

DRUGS (5)
  1. FILGRASTIM [Suspect]
     Active Substance: FILGRASTIM
     Indication: MYELODYSPLASTIC SYNDROME
     Route: 065
  2. AZACITIDINE. [Suspect]
     Active Substance: AZACITIDINE
     Indication: MYELODYSPLASTIC SYNDROME
     Route: 065
  3. MITOXANTRONE [Suspect]
     Active Substance: MITOXANTRONE HYDROCHLORIDE
     Indication: MYELODYSPLASTIC SYNDROME
     Route: 065
  4. CYTARABINE. [Suspect]
     Active Substance: CYTARABINE
     Indication: MYELODYSPLASTIC SYNDROME
     Route: 065
  5. CLADRIBINE. [Suspect]
     Active Substance: CLADRIBINE
     Indication: MYELODYSPLASTIC SYNDROME
     Route: 065

REACTIONS (16)
  - Bronchoalveolar lavage abnormal [Unknown]
  - Thrombocytopenia [Unknown]
  - Febrile neutropenia [Recovered/Resolved]
  - Diarrhoea [Unknown]
  - Dyspnoea [Unknown]
  - Death [Fatal]
  - Enterococcus test positive [Unknown]
  - Splenomegaly [Unknown]
  - Hypoxia [Unknown]
  - Clostridium test positive [Recovered/Resolved]
  - Pyrexia [Recovered/Resolved]
  - Pneumonia fungal [Unknown]
  - Pancytopenia [Unknown]
  - Epistaxis [Unknown]
  - Hepatic cirrhosis [Unknown]
  - Abdominal pain upper [Unknown]
